FAERS Safety Report 8215649-8 (Version None)
Quarter: 2012Q1

REPORT INFORMATION
  Report Type: 
  Country: None (occurrence: None)
  Receive Date: 20120316
  Receipt Date: 20120315
  Transmission Date: 20120608
  Serious: Yes (Hospitalization)
  Sender: FDA-Public Use
  Company Number: SE-ROCHE-1049153

PATIENT
  Age: 42 Year
  Sex: Female

DRUGS (2)
  1. CELEBREX [Concomitant]
  2. ACTEMRA [Suspect]
     Indication: RHEUMATOID ARTHRITIS
     Dosage: 20 MG/ML
     Dates: start: 20110204

REACTIONS (1)
  - RESPIRATORY DISORDER [None]
